FAERS Safety Report 9968625 (Version 1)
Quarter: 2014Q1

REPORT INFORMATION
  Report Type: Report from Study
  Country: US (occurrence: US)
  Receive Date: 20140306
  Receipt Date: 20140306
  Transmission Date: 20141002
  Serious: No
  Sender: FDA-Public Use
  Company Number: US-ABBVIE-13P-163-1140896-00

PATIENT
  Sex: Female
  Weight: 49.94 kg

DRUGS (5)
  1. HUMIRA [Suspect]
     Indication: COLITIS ULCERATIVE
     Dosage: ONE DOSE
     Dates: start: 201208, end: 201208
  2. HUMIRA [Suspect]
     Dosage: ONE DOSE, TWO WEEKS AFTER 160 MG DOSE
     Dates: start: 2012, end: 2012
  3. HUMIRA [Suspect]
     Dosage: FOUR WEEKS AFTER 160 MG DOSE
     Dates: start: 2012
  4. ASACOL [Concomitant]
     Indication: COLITIS ULCERATIVE
  5. SUDAFED [Concomitant]
     Indication: HYPERSENSITIVITY

REACTIONS (3)
  - Fatigue [Recovered/Resolved]
  - Abdominal discomfort [Not Recovered/Not Resolved]
  - Diarrhoea [Not Recovered/Not Resolved]
